FAERS Safety Report 13738872 (Version 2)
Quarter: 2017Q3

REPORT INFORMATION
  Report Type: Spontaneous
  Country: KR (occurrence: KR)
  Receive Date: 20170710
  Receipt Date: 20170711
  Transmission Date: 20171127
  Serious: Yes (Life-Threatening, Hospitalization)
  Sender: FDA-Public Use
  Company Number: KR-UNITED THERAPEUTICS-UNT-2017-010258

PATIENT
  Sex: Male
  Weight: 1.73 kg

DRUGS (2)
  1. REMODULIN [Suspect]
     Active Substance: TREPROSTINIL
     Dosage: 0.020 ?G/KG, CONTINUING
     Route: 041
  2. REMODULIN [Suspect]
     Active Substance: TREPROSTINIL
     Indication: PULMONARY HYPERTENSION
     Dosage: 0.005 ?G/KG, CONTINUING
     Route: 041

REACTIONS (4)
  - Neonatal respiratory distress syndrome [Unknown]
  - Patent ductus arteriosus [Recovered/Resolved]
  - Azotaemia [Recovering/Resolving]
  - Cardiac failure congestive [Unknown]
